FAERS Safety Report 9994498 (Version 1)
Quarter: 2014Q1

REPORT INFORMATION
  Report Type: Spontaneous
  Country: US (occurrence: US)
  Receive Date: 20140311
  Receipt Date: 20140311
  Transmission Date: 20141002
  Serious: No
  Sender: FDA-Public Use
  Company Number: US-BIOGENIDEC-2014BI021235

PATIENT
  Age: 43 Year
  Sex: Female

DRUGS (4)
  1. TYSABRI [Suspect]
     Indication: CROHN^S DISEASE
     Route: 042
     Dates: start: 20130915, end: 20131215
  2. MESALAMINE [Concomitant]
     Indication: CROHN^S DISEASE
  3. REMICADE [Concomitant]
     Indication: CROHN^S DISEASE
  4. TRILEPTAL [Concomitant]
     Indication: PRODUCT USED FOR UNKNOWN INDICATION

REACTIONS (6)
  - Muscular weakness [Not Recovered/Not Resolved]
  - Facial pain [Not Recovered/Not Resolved]
  - Paraesthesia [Not Recovered/Not Resolved]
  - Hypoaesthesia [Not Recovered/Not Resolved]
  - Restlessness [Unknown]
  - Vitamin D deficiency [Unknown]
